FAERS Safety Report 8766815 (Version 2)
Quarter: 2012Q4

REPORT INFORMATION
  Report Type: 
  Country: IT (occurrence: IT)
  Receive Date: 20120904
  Receipt Date: 20120914
  Transmission Date: 20130627
  Serious: Yes (Other)
  Sender: FDA-Public Use
  Company Number: IT-JNJFOC-20120812748

PATIENT
  Age: 17 Year
  Sex: Female
  Weight: 51 kg

DRUGS (3)
  1. RISPERDAL [Suspect]
     Indication: DEPRESSION
     Route: 048
     Dates: start: 20120826, end: 20120826
  2. RISPERDAL [Suspect]
     Indication: DEPRESSION
     Route: 048
  3. DEPAKIN [Concomitant]
     Indication: DEPRESSION
     Route: 065

REACTIONS (2)
  - Self injurious behaviour [Recovered/Resolved]
  - Incorrect dose administered [Recovered/Resolved]
